FAERS Safety Report 16111419 (Version 1)
Quarter: 2019Q1

REPORT INFORMATION
  Report Type: Report from Study
  Country: FR (occurrence: FR)
  Receive Date: 20190325
  Receipt Date: 20190325
  Transmission Date: 20190418
  Serious: Yes (Other)
  Sender: FDA-Public Use
  Company Number: FR-HBP-2019FR018436

PATIENT
  Age: 62 Year
  Sex: Male

DRUGS (1)
  1. VALCHLOR [Suspect]
     Active Substance: MECHLORETHAMINE
     Indication: MYCOSIS FUNGOIDES
     Dosage: UNK, 3/WEEK
     Route: 003
     Dates: end: 20171106

REACTIONS (2)
  - Drug ineffective [Unknown]
  - Mycosis fungoides refractory [Unknown]

NARRATIVE: CASE EVENT DATE: 20171106
